FAERS Safety Report 14076591 (Version 2)
Quarter: 2017Q4

REPORT INFORMATION
  Report Type: Spontaneous
  Country: US (occurrence: US)
  Receive Date: 20171011
  Receipt Date: 20171101
  Transmission Date: 20180321
  Serious: Yes (Death)
  Sender: FDA-Public Use
  Company Number: US-TAKEDA-2017MPI008334

PATIENT
  Sex: Female

DRUGS (16)
  1. NINLARO [Suspect]
     Active Substance: IXAZOMIB CITRATE
     Indication: PLASMA CELL MYELOMA
     Dosage: 3 MG, 1/WEEK
     Route: 048
     Dates: start: 20170814
  2. POMALYST [Suspect]
     Active Substance: POMALIDOMIDE
     Indication: PRODUCT USED FOR UNKNOWN INDICATION
     Route: 065
  3. VITAMIN D3 [Concomitant]
     Active Substance: CHOLECALCIFEROL
     Route: 065
  4. DEXAMETHASONE. [Suspect]
     Active Substance: DEXAMETHASONE
     Indication: PRODUCT USED FOR UNKNOWN INDICATION
     Route: 065
  5. VELCADE [Concomitant]
     Active Substance: BORTEZOMIB
     Route: 065
  6. OXYCODONE AND ACETAMINOPHEN [Concomitant]
     Active Substance: ACETAMINOPHEN\OXYCODONE HYDROCHLORIDE
     Route: 065
  7. LISINOPRIL. [Concomitant]
     Active Substance: LISINOPRIL
     Route: 065
  8. VICODIN ES [Concomitant]
     Active Substance: ACETAMINOPHEN\HYDROCODONE BITARTRATE
     Route: 065
  9. FUROSEMIDE. [Concomitant]
     Active Substance: FUROSEMIDE
     Route: 065
  10. CALCIUM 500+D [Concomitant]
     Active Substance: CALCIUM\VITAMIN D
     Route: 065
  11. ACYCLOVIR                          /00587301/ [Concomitant]
     Active Substance: ACYCLOVIR
     Route: 065
  12. CLONIDINE HCL [Concomitant]
     Active Substance: CLONIDINE HYDROCHLORIDE
     Route: 065
  13. MULTI VITAMINS + MINERALS [Concomitant]
     Route: 065
  14. ZOMETA [Concomitant]
     Active Substance: ZOLEDRONIC ACID
     Route: 065
  15. KLOR-CON M10 [Concomitant]
     Active Substance: POTASSIUM CHLORIDE
     Route: 065
  16. ASPIRIN                            /00002701/ [Concomitant]
     Active Substance: ASPIRIN
     Route: 065

REACTIONS (3)
  - Fatigue [Not Recovered/Not Resolved]
  - Off label use [Unknown]
  - Death [Fatal]
